FAERS Safety Report 23420222 (Version 2)
Quarter: 2024Q1

REPORT INFORMATION
  Report Type: Other
  Country: US (occurrence: None)
  Receive Date: 20240119
  Receipt Date: 20240125
  Transmission Date: 20240409
  Serious: Yes (Hospitalization)
  Sender: FDA-Public Use
  Company Number: US-ROCHE-3491552

PATIENT
  Age: 71 Year
  Sex: Female

DRUGS (1)
  1. OCREVUS [Suspect]
     Active Substance: OCRELIZUMAB
     Indication: Multiple sclerosis
     Dosage: SHE RECEIVED LAST DOSE OF OCRELIZUMAB IN JUN/2023
     Route: 065
     Dates: start: 20230614, end: 20230614

REACTIONS (2)
  - Pneumonia [Unknown]
  - COVID-19 [Unknown]
